FAERS Safety Report 13917572 (Version 1)
Quarter: 2017Q3

REPORT INFORMATION
  Report Type: Spontaneous
  Country: AU (occurrence: AU)
  Receive Date: 20170829
  Receipt Date: 20170829
  Transmission Date: 20171127
  Serious: Yes (Other)
  Sender: FDA-Public Use
  Company Number: AU-GILEAD-2017-0289905

PATIENT
  Sex: Male

DRUGS (3)
  1. PROPRANOLOL [Concomitant]
     Active Substance: PROPRANOLOL HYDROCHLORIDE
  2. LEDIPASVIR/SOFOSBUVIR [Suspect]
     Active Substance: LEDIPASVIR\SOFOSBUVIR
     Indication: CHRONIC HEPATITIS C
     Dosage: 1 DF, UNK
     Route: 065
     Dates: start: 20151217, end: 20160311
  3. RABEPRAZOLE [Concomitant]
     Active Substance: RABEPRAZOLE

REACTIONS (2)
  - Genotype drug resistance test positive [Unknown]
  - Treatment failure [Unknown]
